FAERS Safety Report 4444234-9 (Version None)
Quarter: 2004Q3

REPORT INFORMATION
  Report Type: 
  Country: None (occurrence: None)
  Receive Date: 20040902
  Receipt Date: 20040812
  Transmission Date: 20050211
  Serious: Yes (Other)
  Sender: FDA-Public Use
  Company Number: USA040875269

PATIENT
  Age: 30 Year
  Sex: Male
  Weight: 84 kg

DRUGS (3)
  1. HUMALOG [Suspect]
     Dates: start: 20000101
  2. HUMULIN N [Suspect]
  3. HUMULIN R [Suspect]

REACTIONS (13)
  - BLOOD GLUCOSE DECREASED [None]
  - CHEST PAIN [None]
  - COMA [None]
  - DIARRHOEA [None]
  - DRY SKIN [None]
  - DYSPEPSIA [None]
  - EYE HAEMORRHAGE [None]
  - FEELING COLD [None]
  - HYPERTENSION [None]
  - MUSCULOSKELETAL STIFFNESS [None]
  - SENSORY LOSS [None]
  - STRESS SYMPTOMS [None]
  - WOUND [None]
